FAERS Safety Report 5676118-2 (Version None)
Quarter: 2008Q1

REPORT INFORMATION
  Report Type: 
  Country: None (occurrence: None)
  Receive Date: 20080321
  Receipt Date: 20080310
  Transmission Date: 20080703
  Serious: Yes (Death, Life-Threatening)
  Sender: FDA-Public Use
  Company Number: CA-ROCHE-940804124001

PATIENT
  Age: 23 Year
  Sex: Male

DRUGS (2)
  1. LARIAM [Suspect]
     Indication: MALARIA PROPHYLAXIS
     Route: 048
     Dates: end: 19941222
  2. ALCOHOL [Concomitant]
     Route: 048

REACTIONS (2)
  - COMPLETED SUICIDE [None]
  - HALLUCINATION [None]
